FAERS Safety Report 4673564-0 (Version None)
Quarter: 2005Q2

REPORT INFORMATION
  Report Type: 
  Country: None (occurrence: None)
  Receive Date: 20050523
  Receipt Date: 20050509
  Transmission Date: 20051028
  Serious: Yes (Hospitalization)
  Sender: FDA-Public Use
  Company Number: HQWYE629611MAY05

PATIENT
  Age: 81 Year
  Sex: Female
  Weight: 92.84 kg

DRUGS (1)
  1. MYLOTARG [Suspect]
     Indication: MYELODYSPLASTIC SYNDROME
     Dosage: 15 MG 1X PER 1 DAY, INTRAVENOUS
     Route: 042
     Dates: start: 20050414, end: 20050414

REACTIONS (7)
  - BLOOD PRESSURE SYSTOLIC INCREASED [None]
  - FEBRILE NEUTROPENIA [None]
  - LUNG NEOPLASM [None]
  - PLATELET COUNT DECREASED [None]
  - SCAR [None]
  - SPLENOMEGALY [None]
  - WHITE BLOOD CELL COUNT DECREASED [None]
